FAERS Safety Report 7570074-8 (Version None)
Quarter: 2011Q2

REPORT INFORMATION
  Report Type: 
  Country: None (occurrence: None)
  Receive Date: 20110624
  Receipt Date: 20110609
  Transmission Date: 20111010
  Serious: Yes (Hospitalization, Other)
  Sender: FDA-Public Use
  Company Number: TR-RANBAXY-2011RR-45494

PATIENT
  Sex: Female

DRUGS (2)
  1. CEFACLOR [Suspect]
     Indication: BRONCHITIS
  2. PREDNISONE [Concomitant]

REACTIONS (4)
  - THROMBOCYTOSIS [None]
  - HAEMOLYTIC ANAEMIA [None]
  - LINEAR IGA DISEASE [None]
  - SYSTEMIC LUPUS ERYTHEMATOSUS [None]
